FAERS Safety Report 18270621 (Version 1)
Quarter: 2020Q3

REPORT INFORMATION
  Report Type: Report from Study
  Country: US (occurrence: US)
  Receive Date: 20200915
  Receipt Date: 20200915
  Transmission Date: 20201103
  Serious: Yes (Hospitalization)
  Sender: FDA-Public Use
  Company Number: US-JNJFOC-A-NJ2019-187510

PATIENT
  Age: 69 Year
  Sex: Female
  Weight: 64.47 kg

DRUGS (9)
  1. VELETRI [Suspect]
     Active Substance: EPOPROSTENOL
     Dosage: 42 NG/KG, PER MIN
     Route: 042
  2. VELETRI [Suspect]
     Active Substance: EPOPROSTENOL
     Dosage: 35 NG/KG, PER MIN
     Route: 042
     Dates: start: 20180719
  3. VELETRI [Suspect]
     Active Substance: EPOPROSTENOL
     Dosage: 33 NG/KG, PER MIN
     Route: 042
  4. ADEMPAS [Concomitant]
     Active Substance: RIOCIGUAT
     Dosage: 2.5 MG, TID
  5. OXYGEN. [Concomitant]
     Active Substance: OXYGEN
     Dosage: 2 LITERS/MIN
  6. VELETRI [Suspect]
     Active Substance: EPOPROSTENOL
     Route: 042
  7. VELETRI [Suspect]
     Active Substance: EPOPROSTENOL
     Indication: PULMONARY ARTERIAL HYPERTENSION
     Dosage: 48 NG/KG, PER MIN
     Route: 042
  8. VELETRI [Suspect]
     Active Substance: EPOPROSTENOL
     Dosage: 60 NG/KG, PER MIN
     Route: 042
  9. ADCIRCA [Concomitant]
     Active Substance: TADALAFIL

REACTIONS (8)
  - Diarrhoea [Not Recovered/Not Resolved]
  - Kidney infection [Unknown]
  - Catheter management [Unknown]
  - Catheter site pruritus [Unknown]
  - Dyspnoea exertional [Recovering/Resolving]
  - Device occlusion [Recovered/Resolved]
  - Device alarm issue [Recovered/Resolved]
  - Pain in jaw [Not Recovered/Not Resolved]
